FAERS Safety Report 8143835-4 (Version None)
Quarter: 2012Q1

REPORT INFORMATION
  Report Type: 
  Country: None (occurrence: None)
  Receive Date: 20120217
  Receipt Date: 20120214
  Transmission Date: 20120608
  Serious: Yes (Death, Hospitalization)
  Sender: FDA-Public Use
  Company Number: CA-B.I. PHARMACEUTICALS,INC./RIDGEFIELD-2012-CN-00277CN

PATIENT
  Age: 85 Year
  Sex: Male
  Weight: 91 kg

DRUGS (7)
  1. ASPIRIN [Concomitant]
     Route: 065
  2. PRADAXA [Suspect]
     Indication: ANTICOAGULANT THERAPY
     Dosage: 300 MG
     Route: 048
  3. FUROSEMIDE [Concomitant]
     Route: 065
  4. IRON [Concomitant]
     Route: 065
  5. MERREM [Concomitant]
     Route: 042
  6. LEVOTHYROXINE SODIUM [Concomitant]
     Route: 065
  7. STATIN [Concomitant]
     Route: 065

REACTIONS (6)
  - HAEMORRHAGE URINARY TRACT [None]
  - HAEMATEMESIS [None]
  - OVERDOSE [None]
  - RENAL FAILURE ACUTE [None]
  - ANTICOAGULATION DRUG LEVEL ABOVE THERAPEUTIC [None]
  - COAGULATION TIME PROLONGED [None]
